FAERS Safety Report 7800332-0 (Version None)
Quarter: 2011Q4

REPORT INFORMATION
  Report Type: 
  Country: None (occurrence: None)
  Receive Date: 20111006
  Receipt Date: 20110926
  Transmission Date: 20120403
  Serious: Yes (Other)
  Sender: FDA-Public Use
  Company Number: US-BAYER-201034488NA

PATIENT
  Age: 20 Year
  Sex: Female
  Weight: 70.748 kg

DRUGS (10)
  1. ANTICONVULSANTS [Concomitant]
     Indication: CONVULSION
  2. MULTI-VITAMIN [Concomitant]
  3. NSAID'S [Concomitant]
  4. YAZ [Suspect]
     Indication: ACNE
     Dosage: UNK
     Dates: start: 20050101, end: 20070101
  5. ANTIBIOTICS [Concomitant]
     Indication: INFECTION
  6. BISMUTH SUBSALICYLATE [Concomitant]
  7. EFFEXOR [Concomitant]
  8. IBUPROFEN (ADVIL) [Concomitant]
  9. YAZ [Suspect]
     Indication: POLYCYSTIC OVARIES
  10. LAMICTAL [Concomitant]

REACTIONS (5)
  - BILIARY DYSKINESIA [None]
  - DIARRHOEA [None]
  - CHOLECYSTECTOMY [None]
  - WEIGHT INCREASED [None]
  - MENTAL DISORDER [None]
